FAERS Safety Report 9106266 (Version 1)
Quarter: 2013Q1

REPORT INFORMATION
  Report Type: Spontaneous
  Country: HU (occurrence: HU)
  Receive Date: 20130221
  Receipt Date: 20130221
  Transmission Date: 20140127
  Serious: Yes (Other)
  Sender: FDA-Public Use
  Company Number: PHHY2013HU016508

PATIENT
  Age: 59 Year
  Sex: Female
  Weight: 80 kg

DRUGS (6)
  1. ONBREZ [Suspect]
     Indication: CHRONIC OBSTRUCTIVE PULMONARY DISEASE
     Dosage: 150 UG, QD
  2. ONBREZ [Suspect]
     Dosage: 300 UG, QD
     Dates: start: 20121210
  3. ONBREZ [Suspect]
     Dosage: 150 UG, QD
  4. LISONORM [Concomitant]
  5. XANAX [Concomitant]
  6. MAGNE B6 [Concomitant]

REACTIONS (1)
  - Convulsion [Recovered/Resolved]
